FAERS Safety Report 21217877 (Version 1)
Quarter: 2022Q3

REPORT INFORMATION
  Report Type: Spontaneous
  Country: US (occurrence: None)
  Receive Date: 20220815
  Receipt Date: 20220815
  Transmission Date: 20221026
  Serious: Yes (Death)
  Sender: FDA-Public Use
  Company Number: None

PATIENT
  Age: 74 Year
  Sex: Male

DRUGS (8)
  1. PIRFENIDONE [Suspect]
     Active Substance: PIRFENIDONE
     Indication: Idiopathic pulmonary fibrosis
     Dosage: FREQUENCY : 3 TIMES A DAY;?
     Route: 048
     Dates: start: 2022, end: 2022
  2. CRESTOR [Concomitant]
     Active Substance: ROSUVASTATIN CALCIUM
  3. PLAVIX [Concomitant]
     Active Substance: CLOPIDOGREL BISULFATE
  4. SYMBICORT [Concomitant]
     Active Substance: BUDESONIDE\FORMOTEROL FUMARATE DIHYDRATE
  5. TRICOR [Concomitant]
     Active Substance: FENOFIBRATE
  6. VENTOLIN [Concomitant]
     Active Substance: ALBUTEROL SULFATE
  7. ASPIRIN [Concomitant]
     Active Substance: ASPIRIN
  8. LOSARTAN [Concomitant]
     Active Substance: LOSARTAN

REACTIONS (1)
  - Death [None]
